FAERS Safety Report 8457210-6 (Version None)
Quarter: 2012Q2

REPORT INFORMATION
  Report Type: 
  Country: None (occurrence: None)
  Receive Date: 20120621
  Receipt Date: 20120608
  Transmission Date: 20120825
  Serious: Yes (Other)
  Sender: FDA-Public Use
  Company Number: PHHY2012JP050963

PATIENT

DRUGS (4)
  1. PREDNISOLONE [Concomitant]
     Dosage: 20 MG, DAILY
  2. ETANERCEPT [Concomitant]
     Dosage: 25 MG, WEEKLY
     Route: 064
  3. PREDNISOLONE [Concomitant]
     Dosage: 10 MG, DAILY
     Route: 064
  4. CYCLOSPORINE [Suspect]
     Dosage: 150 MG, DAILY
     Route: 064

REACTIONS (3)
  - INTERLEUKIN LEVEL INCREASED [None]
  - FOETAL GROWTH RESTRICTION [None]
  - FOETAL EXPOSURE DURING PREGNANCY [None]
